FAERS Safety Report 8186539-4 (Version None)
Quarter: 2012Q1

REPORT INFORMATION
  Report Type: 
  Country: None (occurrence: None)
  Receive Date: 20120302
  Receipt Date: 20120302
  Transmission Date: 20120608
  Serious: Yes (Hospitalization)
  Sender: FDA-Public Use
  Company Number: None

PATIENT
  Sex: Female
  Weight: 88.905 kg

DRUGS (2)
  1. CIPROFLOXACIN [Suspect]
     Indication: URINARY TRACT INFECTION
     Dosage: 500 MG TAB 1-2X PER DAY ORAL
     Route: 048
     Dates: start: 20111205, end: 20111210
  2. CIPROFLOXACIN [Suspect]
     Indication: SINUS DISORDER
     Dosage: 500 MG TAB 1-2X PER DAY ORAL
     Route: 048
     Dates: start: 20111205, end: 20111210

REACTIONS (1)
  - TENDON RUPTURE [None]
